FAERS Safety Report 7118806-7 (Version None)
Quarter: 2010Q4

REPORT INFORMATION
  Report Type: 
  Country: None (occurrence: None)
  Receive Date: 20101123
  Receipt Date: 20100915
  Transmission Date: 20110411
  Serious: No
  Sender: FDA-Public Use
  Company Number: US-KINGPHARMUSA00001-K201001164

PATIENT
  Sex: Male

DRUGS (3)
  1. FLECTOR [Suspect]
     Indication: MUSCLE STRAIN
     Dosage: UNK PATCH, UNK
     Route: 061
  2. LORTAB [Concomitant]
     Dosage: UNK
  3. SOMA [Concomitant]
     Dosage: UNK

REACTIONS (1)
  - SKIN EXFOLIATION [None]
